FAERS Safety Report 24565585 (Version 1)
Quarter: 2024Q4

REPORT INFORMATION
  Report Type: Spontaneous
  Country: JP (occurrence: JP)
  Receive Date: 20241030
  Receipt Date: 20241030
  Transmission Date: 20250115
  Serious: Yes (Other)
  Sender: RANBAXY
  Company Number: JP-SUN PHARMACEUTICAL INDUSTRIES LTD-2024RR-476376

PATIENT
  Age: 63 Year
  Sex: Female

DRUGS (5)
  1. ASPIRIN [Suspect]
     Active Substance: ASPIRIN
     Indication: Thromboangiitis obliterans
     Dosage: UNK
     Route: 065
  2. PREDNISOLONE [Suspect]
     Active Substance: PREDNISOLONE
     Indication: Thromboangiitis obliterans
     Dosage: UNK
     Route: 048
  3. NIFEDIPINE [Suspect]
     Active Substance: NIFEDIPINE
     Indication: Thromboangiitis obliterans
     Dosage: UNK
     Route: 065
  4. ALPROSTADIL [Suspect]
     Active Substance: ALPROSTADIL
     Indication: Thromboangiitis obliterans
     Dosage: UNK
     Route: 065
  5. BERAPROST [Suspect]
     Active Substance: BERAPROST
     Indication: Thromboangiitis obliterans
     Dosage: UNK
     Route: 065

REACTIONS (1)
  - Therapy partial responder [Unknown]
